FAERS Safety Report 10875984 (Version 1)
Quarter: 2015Q1

REPORT INFORMATION
  Report Type: Spontaneous
  Country: US (occurrence: US)
  Receive Date: 20150227
  Receipt Date: 20150227
  Transmission Date: 20150721
  Serious: No
  Sender: FDA-Public Use
  Company Number: US-AMGEN-USASP2014024769

PATIENT
  Age: 62 Year
  Sex: Male
  Weight: 92.06 kg

DRUGS (11)
  1. PAXIL [Concomitant]
     Active Substance: PAROXETINE HYDROCHLORIDE
     Dosage: 30 MG, UNK
  2. FOLIC ACID. [Concomitant]
     Active Substance: FOLIC ACID
     Dosage: 1 MG, UNK
  3. FISH OIL [Concomitant]
     Active Substance: FISH OIL
     Dosage: UNK
  4. METHOTREXATE [Concomitant]
     Active Substance: METHOTREXATE
     Dosage: 2.5 MG, UNK
  5. GREEN TEA                          /01578101/ [Concomitant]
     Dosage: 250 MG, UNK
  6. LEVOTHYROXIN [Concomitant]
     Active Substance: LEVOTHYROXINE
     Dosage: 125 MUG, UNK
  7. ENBREL [Suspect]
     Active Substance: ETANERCEPT
     Indication: PRODUCT USED FOR UNKNOWN INDICATION
     Dosage: 50 MG, QWK
     Route: 058
  8. DICLOFENAC [Concomitant]
     Active Substance: DICLOFENAC
     Dosage: 25 MG, UNK
  9. RAMIPRIL. [Concomitant]
     Active Substance: RAMIPRIL
     Dosage: 10 MG, UNK
  10. OMEGA 3-6-9                        /01334101/ [Concomitant]
     Dosage: UNK
  11. LACTAID [Concomitant]
     Active Substance: LACTASE
     Dosage: 3000 UNIT, UNK

REACTIONS (1)
  - Psoriatic arthropathy [Unknown]
